FAERS Safety Report 5757253-7 (Version None)
Quarter: 2008Q2

REPORT INFORMATION
  Report Type: 
  Country: None (occurrence: None)
  Receive Date: 20080603
  Receipt Date: 20080522
  Transmission Date: 20081010
  Serious: Yes (Hospitalization, Other)
  Sender: FDA-Public Use
  Company Number: US-ELI_LILLY_AND_COMPANY-US200805004621

PATIENT
  Sex: Female

DRUGS (17)
  1. FORTEO [Suspect]
     Dosage: UNK, UNK
  2. NOVOLOG [Concomitant]
  3. ALLOPURINOL [Concomitant]
  4. CARDIZEM [Concomitant]
  5. CATAPRES /00171102/ [Concomitant]
  6. CELEXA [Concomitant]
  7. VITAMINS NOS [Concomitant]
  8. COLACE [Concomitant]
  9. COLCHICINE [Concomitant]
  10. K-DUR [Concomitant]
     Indication: BLOOD POTASSIUM DECREASED
  11. KEPPRA [Concomitant]
  12. LANTUS [Concomitant]
  13. LASIX [Concomitant]
  14. LIPITOR [Concomitant]
  15. MEGACE [Concomitant]
  16. PEPCID [Concomitant]
  17. QUESTRAN [Concomitant]

REACTIONS (5)
  - APPETITE DISORDER [None]
  - ASTHENIA [None]
  - COGNITIVE DISORDER [None]
  - FALL [None]
  - SUBDURAL HAEMATOMA [None]
